FAERS Safety Report 6837812 (Version 4)
Quarter: 2025Q3

REPORT INFORMATION
  Report Type: Spontaneous
  Country: TR (occurrence: TR)
  Receive Date: 20081208
  Receipt Date: 20250813
  Transmission Date: 20251021
  Serious: Yes (Death)
  Sender: MERCK SHARP & DOHME LLC
  Company Number: TR-MERCK-0812TUR00001

PATIENT
  Age: 58 Year
  Sex: Male

DRUGS (3)
  1. CANCIDAS [Suspect]
     Active Substance: CASPOFUNGIN ACETATE
     Indication: Antifungal treatment
     Route: 041
  2. INSULIN NOS [Concomitant]
     Active Substance: INSULIN NOS
     Indication: Diabetes mellitus
  3. AMPHOTERICIN B\CHOLESTEROL [Concomitant]
     Active Substance: AMPHOTERICIN B\CHOLESTEROL

REACTIONS (2)
  - Bronchopulmonary aspergillosis [Fatal]
  - Treatment failure [Unknown]
